FAERS Safety Report 5355410-5 (Version None)
Quarter: 2007Q2

REPORT INFORMATION
  Report Type: 
  Country: None (occurrence: None)
  Receive Date: 20070525
  Receipt Date: 20070314
  Transmission Date: 20071010
  Serious: Yes (Disabling)
  Sender: FDA-Public Use
  Company Number: WAES 0703USA02769

PATIENT
  Age: 65 Year
  Sex: Female
  Weight: 68.9467 kg

DRUGS (5)
  1. VYTORIN [Suspect]
     Indication: HYPERCHOLESTEROLAEMIA
     Dosage: 10-10 MG/DAILY/PO
     Route: 048
     Dates: start: 20070312, end: 20070313
  2. COLACE [Concomitant]
  3. NEURONTIN [Concomitant]
  4. WELLBUTRIN [Concomitant]
  5. ALBUTEROL [Concomitant]

REACTIONS (3)
  - FATIGUE [None]
  - MYALGIA [None]
  - NAUSEA [None]
